FAERS Safety Report 17471753 (Version 1)
Quarter: 2020Q1

REPORT INFORMATION
  Report Type: Spontaneous
  Country: CA (occurrence: CA)
  Receive Date: 20200228
  Receipt Date: 20200228
  Transmission Date: 20200409
  Serious: Yes (Other)
  Sender: FDA-Public Use
  Company Number: CA-ALK-ABELLO A/S-2020AA000648

PATIENT

DRUGS (8)
  1. PHARMALGEN WASP (POLISTES ANNULARIS VENOM PROTEIN\POLISTES EXCLAMANS VENOM PROTEIN\POLISTES FUSCATUS VENOM PROTEIN\POLISTES METRICUS VENOM PROTEIN) [Suspect]
     Active Substance: POLISTES ANNULARIS VENOM PROTEIN\POLISTES EXCLAMANS VENOM PROTEIN\POLISTES FUSCATUS VENOM PROTEIN\POLISTES METRICUS VENOM PROTEIN
     Indication: IMMUNE TOLERANCE INDUCTION
     Dosage: 100 UG/ML
  2. VENOMS, MIXED VESPID VENOM PROTEIN [Suspect]
     Active Substance: DOLICHOVESPULA ARENARIA VENOM PROTEIN\ DOLICHOVESPULA MACULATA VENOM PROTEIN\ VESPULA MACULIFRONS VENOM PROTEIN
     Indication: IMMUNE TOLERANCE INDUCTION
     Dosage: 300 UG/ML
  3. MIXED VESPID HYMENOPTERA VENOM MULTIDOSE [Suspect]
     Active Substance: DOLICHOVESPULA ARENARIA VENOM PROTEIN\DOLICHOVESPULA MACULATA VENOM PROTEIN\VESPULA GERMANICA VENOM PROTEIN\VESPULA MACULIFRONS VENOM PROTEIN\VESPULA PENSYLVANICA VENOM PROTEIN\VESPULA SQUAMOSA VENOM PROTEIN\VESPULA VULGARIS VENOM PROTEIN
     Dosage: 1 UG/ML
  4. CROMOLYN                           /00082101/ [Concomitant]
     Active Substance: CROMOLYN
  5. VENOMS, MIXED VESPID VENOM PROTEIN [Suspect]
     Active Substance: DOLICHOVESPULA ARENARIA VENOM PROTEIN\ DOLICHOVESPULA MACULATA VENOM PROTEIN\ VESPULA MACULIFRONS VENOM PROTEIN
     Dosage: 100 MG/ML
  6. VENOMS, MIXED VESPID VENOM PROTEIN [Suspect]
     Active Substance: DOLICHOVESPULA ARENARIA VENOM PROTEIN\ DOLICHOVESPULA MACULATA VENOM PROTEIN\ VESPULA MACULIFRONS VENOM PROTEIN
     Dosage: 0.1 UG/ML
  7. MIXED VESPID HYMENOPTERA VENOM MULTIDOSE [Suspect]
     Active Substance: DOLICHOVESPULA ARENARIA VENOM PROTEIN\DOLICHOVESPULA MACULATA VENOM PROTEIN\VESPULA GERMANICA VENOM PROTEIN\VESPULA MACULIFRONS VENOM PROTEIN\VESPULA PENSYLVANICA VENOM PROTEIN\VESPULA SQUAMOSA VENOM PROTEIN\VESPULA VULGARIS VENOM PROTEIN
     Indication: IMMUNE TOLERANCE INDUCTION
     Dosage: 100 UG/ML
  8. OMALIZUMAB. [Concomitant]
     Active Substance: OMALIZUMAB

REACTIONS (1)
  - Parkinsonism [Not Recovered/Not Resolved]
